FAERS Safety Report 6836344-3 (Version None)
Quarter: 2010Q3

REPORT INFORMATION
  Report Type: 
  Country: None (occurrence: None)
  Receive Date: 20100713
  Receipt Date: 20100706
  Transmission Date: 20110219
  Serious: Yes (Death, Hospitalization)
  Sender: FDA-Public Use
  Company Number: JP-MERCK-1006USA03030

PATIENT
  Age: 73 Year
  Sex: Male
  Weight: 38 kg

DRUGS (10)
  1. PEPCID RPD [Suspect]
     Indication: PROPHYLAXIS
     Route: 048
     Dates: start: 20100512, end: 20100608
  2. SERENACE [Suspect]
     Indication: BRAIN CONTUSION
     Route: 048
     Dates: start: 20100512, end: 20100608
  3. PHENYTOIN SODIUM [Suspect]
     Indication: EPILEPSY
     Route: 048
     Dates: start: 20100512, end: 20100608
  4. PREDONINE [Concomitant]
     Route: 065
     Dates: end: 20100608
  5. PEPCID [Concomitant]
     Route: 065
     Dates: start: 20100609, end: 20100615
  6. GLYBURIDE [Concomitant]
     Indication: DIABETES MELLITUS
     Route: 065
     Dates: end: 20100608
  7. NORVASC [Concomitant]
     Indication: HYPERTENSION
     Route: 065
     Dates: end: 20100608
  8. URSO 250 [Concomitant]
     Route: 065
     Dates: end: 20100608
  9. GRAMALIL [Concomitant]
     Indication: BRAIN CONTUSION
     Route: 065
     Dates: end: 20100608
  10. ROHYPNOL [Concomitant]
     Indication: BRAIN CONTUSION
     Route: 065
     Dates: end: 20100608

REACTIONS (1)
  - AGRANULOCYTOSIS [None]
